FAERS Safety Report 8837380 (Version 1)
Quarter: 2012Q4

REPORT INFORMATION
  Report Type: 
  Country: RU (occurrence: RU)
  Receive Date: 20121012
  Receipt Date: 20121012
  Transmission Date: 20130627
  Serious: Yes (Other)
  Sender: FDA-Public Use
  Company Number: PHHY2012RU090221

PATIENT
  Age: 58 Year
  Sex: Female

DRUGS (1)
  1. ACLASTA [Suspect]
     Route: 042

REACTIONS (1)
  - Hand fracture [Unknown]
